FAERS Safety Report 4864026-6 (Version None)
Quarter: 2005Q4

REPORT INFORMATION
  Report Type: 
  Country: None (occurrence: None)
  Receive Date: 20051219
  Receipt Date: 20051219
  Transmission Date: 20060501
  Serious: No
  Sender: FDA-Public Use
  Company Number: None

PATIENT
  Sex: Male
  Weight: 89.8122 kg

DRUGS (1)
  1. CLOZAPINE [Suspect]
     Indication: SCHIZOPHRENIA
     Dosage: TITRATED TO 300G/DAY
     Dates: start: 20050819, end: 20050904

REACTIONS (8)
  - BLOOD CREATINE PHOSPHOKINASE INCREASED [None]
  - BODY TEMPERATURE INCREASED [None]
  - CHEST PAIN [None]
  - MALAISE [None]
  - MYOCARDITIS [None]
  - PERICARDITIS [None]
  - TROPONIN INCREASED [None]
  - WHITE BLOOD CELL COUNT INCREASED [None]
